FAERS Safety Report 26185957 (Version 1)
Quarter: 2025Q4

REPORT INFORMATION
  Report Type: Spontaneous
  Country: US (occurrence: None)
  Receive Date: 20251220
  Receipt Date: 20251220
  Transmission Date: 20260117
  Serious: Yes (Life-Threatening)
  Sender: FDA-CTU
  Company Number: None

PATIENT
  Age: 28 Year
  Sex: Male
  Weight: 78.75 kg

DRUGS (2)
  1. FINASTERIDE [Suspect]
     Active Substance: FINASTERIDE
     Indication: Alopecia
     Dosage: 1 TABLET DAILY ORAL
     Route: 048
     Dates: start: 20231212, end: 20231212
  2. MAGNESIUM [Concomitant]
     Active Substance: MAGNESIUM

REACTIONS (22)
  - Sexual dysfunction [None]
  - Loss of libido [None]
  - Erectile dysfunction [None]
  - Genital hypoaesthesia [None]
  - Penile size reduced [None]
  - Neuropsychiatric syndrome [None]
  - Loss of personal independence in daily activities [None]
  - Quality of life decreased [None]
  - Depression [None]
  - Anxiety [None]
  - Insomnia [None]
  - Brain fog [None]
  - Cognitive disorder [None]
  - Loss of employment [None]
  - Bradyphrenia [None]
  - Disturbance in attention [None]
  - Head discomfort [None]
  - Pollakiuria [None]
  - Fatigue [None]
  - Nervous system disorder [None]
  - Product communication issue [None]
  - Emotional disorder [None]

NARRATIVE: CASE EVENT DATE: 20240708
